FAERS Safety Report 18389107 (Version 8)
Quarter: 2021Q1

REPORT INFORMATION
  Report Type: Spontaneous
  Country: CA (occurrence: CA)
  Receive Date: 20201016
  Receipt Date: 20210323
  Transmission Date: 20210419
  Serious: Yes (Other)
  Sender: FDA-Public Use
  Company Number: CA-CELLTRION INC.-2020CA025667

PATIENT

DRUGS (6)
  1. INFLECTRA [Suspect]
     Active Substance: INFLIXIMAB-DYYB
     Dosage: 400 MG AT 0, 2, 6, THEN EVERY 6 WEEKS
     Route: 042
     Dates: start: 20201204
  2. INFLECTRA [Suspect]
     Active Substance: INFLIXIMAB-DYYB
     Dosage: 400 MG AT 0, 2, 6, THEN EVERY 6 WEEKS/Q 6 WEEK DOSE ON 14OCT2020
     Route: 042
     Dates: start: 20201014
  3. INFLECTRA [Suspect]
     Active Substance: INFLIXIMAB-DYYB
     Indication: UVEITIS
     Dosage: 400 MG AT 0, 2, 6, THEN EVERY 6 WEEKS/Q 0 WEEK DOSE
     Route: 042
     Dates: start: 20200827, end: 20200827
  4. METHOTREXATE. [Concomitant]
     Active Substance: METHOTREXATE
     Dosage: 15 MG, WEEKLY
     Route: 048
  5. INFLECTRA [Suspect]
     Active Substance: INFLIXIMAB-DYYB
     Dosage: 400 MG AT 0, 2, 6, THEN EVERY 6 WEEKS
     Route: 042
     Dates: start: 20210301
  6. INFLECTRA [Suspect]
     Active Substance: INFLIXIMAB-DYYB
     Dosage: 400 MG AT 0, 2, 6, THEN EVERY 6 WEEKS/Q 2 WEEKDOSE
     Route: 042
     Dates: start: 20200914, end: 20200914

REACTIONS (15)
  - Pain [Not Recovered/Not Resolved]
  - Blood pressure systolic increased [Unknown]
  - Malaise [Unknown]
  - Visual impairment [Unknown]
  - Body temperature decreased [Unknown]
  - Dry eye [Unknown]
  - Suspected COVID-19 [Unknown]
  - Eye pain [Unknown]
  - Influenza [Recovering/Resolving]
  - Fatigue [Unknown]
  - Deafness [Unknown]
  - Off label use [Unknown]
  - Gastrooesophageal reflux disease [Unknown]
  - Renal impairment [Not Recovered/Not Resolved]
  - Weight increased [Not Recovered/Not Resolved]

NARRATIVE: CASE EVENT DATE: 2020
